FAERS Safety Report 17010407 (Version 1)
Quarter: 2019Q4

REPORT INFORMATION
  Report Type: Spontaneous
  Country: PT (occurrence: PT)
  Receive Date: 20191108
  Receipt Date: 20191108
  Transmission Date: 20200122
  Serious: Yes (Other)
  Sender: FDA-Public Use
  Company Number: PT-GALDERMA-PT19066746

PATIENT
  Age: 87 Year
  Sex: Female

DRUGS (3)
  1. DOXYCYCLINE. [Concomitant]
     Active Substance: DOXYCYCLINE
     Indication: PNEUMONIA
     Dosage: 100 MG, 2X/DAY
     Route: 048
  2. DOXYCYCLINE. [Suspect]
     Active Substance: DOXYCYCLINE
     Indication: RESPIRATORY FAILURE
     Route: 065
  3. SULFAMETOXAZOL/TRIMETOPRIM [Concomitant]
     Active Substance: SULFAMETHOXAZOLE\TRIMETHOPRIM
     Indication: PNEUMONIA
     Dosage: 480 MG, 2X/DAY
     Route: 042

REACTIONS (3)
  - Product use in unapproved indication [Recovered/Resolved]
  - Oesophageal injury [Recovered/Resolved]
  - Dysphagia [Recovered/Resolved]
